FAERS Safety Report 10342430 (Version 2)
Quarter: 2014Q3

REPORT INFORMATION
  Report Type: Spontaneous
  Country: US (occurrence: US)
  Receive Date: 20140725
  Receipt Date: 20140812
  Transmission Date: 20150326
  Serious: Yes (Other)
  Sender: FDA-Public Use
  Company Number: US-SA-2014SA097888

PATIENT
  Age: 72 Year
  Sex: Female
  Weight: 100.69 kg

DRUGS (4)
  1. SOLOSTAR [Concomitant]
     Active Substance: DEVICE
  2. PREDNISONE. [Concomitant]
     Active Substance: PREDNISONE
  3. THYROID THERAPY [Concomitant]
     Active Substance: UNSPECIFIED INGREDIENT
  4. LANTUS SOLOSTAR [Suspect]
     Active Substance: INSULIN GLARGINE
     Indication: TYPE 2 DIABETES MELLITUS
     Dosage: DOSE:40 UNIT(S)
     Route: 065

REACTIONS (1)
  - Breast cancer [Unknown]
